FAERS Safety Report 4849190-7 (Version None)
Quarter: 2005Q4

REPORT INFORMATION
  Report Type: 
  Country: None (occurrence: None)
  Receive Date: 20051209
  Receipt Date: 20051005
  Transmission Date: 20060501
  Serious: Yes (Death, Hospitalization)
  Sender: FDA-Public Use
  Company Number: US-MERCK-0510USA04244

PATIENT
  Age: 75 Year
  Sex: Female
  Weight: 70 kg

DRUGS (3)
  1. VIOXX [Suspect]
     Indication: ARTHRITIS
     Route: 048
     Dates: start: 20001201, end: 20010101
  2. SYNTHROID [Concomitant]
     Route: 065
  3. ZESTRIL [Concomitant]
     Route: 065

REACTIONS (11)
  - ARTERIOSCLEROSIS [None]
  - CONSTIPATION [None]
  - DEATH [None]
  - DEPRESSION [None]
  - HYPOKALAEMIA [None]
  - PETECHIAE [None]
  - PYREXIA [None]
  - SINUS DISORDER [None]
  - SUBARACHNOID HAEMORRHAGE [None]
  - URINARY RETENTION [None]
  - URINARY TRACT INFECTION [None]
